FAERS Safety Report 23455712 (Version 1)
Quarter: 2024Q1

REPORT INFORMATION
  Report Type: Spontaneous
  Country: ES (occurrence: None)
  Receive Date: 20240130
  Receipt Date: 20240130
  Transmission Date: 20240410
  Serious: Yes (Hospitalization)
  Sender: FDA-Public Use
  Company Number: 2024A016754

PATIENT
  Age: 91 Year
  Sex: Female
  Weight: 67.2 kg

DRUGS (3)
  1. CALQUENCE [Suspect]
     Active Substance: ACALABRUTINIB
     Indication: Chronic lymphocytic leukaemia
     Dosage: 1 EVERY 24 HOURS (DOSE REDUCED DUE TO INTERACTION WITH DILTIAZEM)
     Route: 048
     Dates: start: 20231013, end: 20231015
  2. DILTIAZEM [Suspect]
     Active Substance: DILTIAZEM
     Indication: Myocardial ischaemia
     Dosage: 0.5 TABLET PER DAY (DOSE REDUCTION ON 09/26 BY AGE GROUP AND COMORBIDITIES PREVIOUSLY 0.5 EVERY 1...
     Route: 048
     Dates: start: 20230926
  3. AZITHROMYCIN [Concomitant]
     Active Substance: AZITHROMYCIN
     Indication: Respiratory tract infection
     Dosage: 1 PER DAY
     Route: 048
     Dates: start: 20231013, end: 20231015

REACTIONS (1)
  - Cardiac failure acute [Recovered/Resolved]

NARRATIVE: CASE EVENT DATE: 20231015
